FAERS Safety Report 25787195 (Version 1)
Quarter: 2025Q3

REPORT INFORMATION
  Report Type: Spontaneous
  Country: US (occurrence: None)
  Receive Date: 20250910
  Receipt Date: 20250910
  Transmission Date: 20251020
  Serious: Yes (Hospitalization)
  Sender: FDA-CTU
  Company Number: None

PATIENT
  Sex: Male

DRUGS (11)
  1. LENALIDOMIDE [Suspect]
     Active Substance: LENALIDOMIDE
  2. ACYCLOVIR [Concomitant]
     Active Substance: ACYCLOVIR
  3. ALBUTEROL AER HFA [Concomitant]
  4. AMLOD/VALSAR TAB 5-320MG [Concomitant]
  5. ASPIRIN CHW 81MG [Concomitant]
  6. ATORVASTATIN TAB 10MG [Concomitant]
  7. BENZONATATE CAP 100MG [Concomitant]
  8. CALCIUM 600 TAB +D/MNRLS [Concomitant]
  9. CYCLOBENZAPRTAB10MG [Concomitant]
  10. ELIQUIS TABSMG [Concomitant]
  11. EXFORGE TAB 10-160MG [Concomitant]

REACTIONS (1)
  - Pneumonia [None]
